FAERS Safety Report 15108053 (Version 3)
Quarter: 2018Q3

REPORT INFORMATION
  Report Type: Report from Study
  Country: US (occurrence: US)
  Receive Date: 20180704
  Receipt Date: 20180820
  Transmission Date: 20181010
  Serious: Yes (Other)
  Sender: FDA-Public Use
  Company Number: US-TEVA-2018-US-920054

PATIENT
  Age: 15 Year
  Sex: Female

DRUGS (1)
  1. CLARAVIS [Suspect]
     Active Substance: ISOTRETINOIN
     Dosage: 80 MILLIGRAM DAILY; BID
     Route: 065
     Dates: start: 20180406, end: 20180625

REACTIONS (2)
  - Unintended pregnancy [Unknown]
  - Abortion induced [Unknown]

NARRATIVE: CASE EVENT DATE: 20180707
